FAERS Safety Report 8845938 (Version 2)
Quarter: 2012Q4

REPORT INFORMATION
  Report Type: 
  Country: US (occurrence: US)
  Receive Date: 20121017
  Receipt Date: 20121022
  Transmission Date: 20130627
  Serious: Yes (Other)
  Sender: FDA-Public Use
  Company Number: US-ASTRAZENECA-2012SE77688

PATIENT
  Age: 72 Year
  Sex: Female
  Weight: 65.3 kg

DRUGS (6)
  1. SEROQUEL [Suspect]
     Indication: BIPOLAR DISORDER
     Route: 048
  2. SEROQUEL [Suspect]
     Indication: AFFECTIVE DISORDER
     Route: 048
  3. LAMOTRIGINE [Concomitant]
     Indication: AFFECTIVE DISORDER
     Route: 048
  4. WELLBUTRIN [Concomitant]
     Indication: AFFECTIVE DISORDER
     Route: 048
  5. PREMARIN [Concomitant]
     Indication: AFFECTIVE DISORDER
     Route: 048
  6. PREMARIN [Concomitant]
     Indication: MENOPAUSE
     Route: 048

REACTIONS (8)
  - Road traffic accident [Unknown]
  - Trigeminal neuralgia [Unknown]
  - Clostridium difficile infection [Unknown]
  - Abnormal loss of weight [Unknown]
  - Adverse event [Unknown]
  - Body temperature decreased [Unknown]
  - Drug dose omission [Unknown]
  - Intentional drug misuse [Unknown]
